FAERS Safety Report 15537309 (Version 3)
Quarter: 2021Q3

REPORT INFORMATION
  Report Type: Spontaneous
  Country: IN (occurrence: IN)
  Receive Date: 20181022
  Receipt Date: 20210930
  Transmission Date: 20211014
  Serious: Yes (Other)
  Sender: FDA-Public Use
  Company Number: IN-PFIZER INC-2018427070

PATIENT
  Age: 79 Year
  Sex: Female

DRUGS (7)
  1. PALBACE [Suspect]
     Active Substance: PALBOCICLIB
     Dosage: 125 MG, CYCLIC (ONCE DAILY, 21/28 DAYS X 3 MONTHS)
     Route: 048
     Dates: start: 20210610
  2. SHELCAL [CALCIUM CARBONATE;COLECALCIFEROL] [Concomitant]
     Dosage: 500 MG
  3. SHELCAL [CALCIUM CARBONATE;COLECALCIFEROL] [Concomitant]
     Dosage: 520 MG, 1X/DAY
  4. PALBACE [Suspect]
     Active Substance: PALBOCICLIB
     Indication: BREAST CANCER METASTATIC
     Dosage: 125 MG
     Route: 048
     Dates: start: 201712
  5. FEMPRO [Concomitant]
     Active Substance: LETROZOLE
     Indication: BREAST CANCER METASTATIC
     Dosage: 2.5 MG, 1X/DAY
     Dates: start: 201712
  6. FERRIC CARBOXYMALTOSE [Concomitant]
     Active Substance: FERRIC CARBOXYMALTOSE
     Dosage: 2.5 MG, 1X/DAY
  7. PALBACE [Suspect]
     Active Substance: PALBOCICLIB
     Dosage: 125 MG, CYCLIC (ONCE DAILY, 21/28 DAYS X 3 MONTHS)
     Route: 048
     Dates: start: 20180109

REACTIONS (7)
  - Accessory spleen [Unknown]
  - Renal cyst [Unknown]
  - Bone disorder [Unknown]
  - Hepatomegaly [Unknown]
  - Bone hypertrophy [Unknown]
  - Osteoarthritis [Unknown]
  - Autoimmune thyroiditis [Unknown]
